FAERS Safety Report 8374342-1 (Version None)
Quarter: 2012Q2

REPORT INFORMATION
  Report Type: 
  Country: None (occurrence: None)
  Receive Date: 20120521
  Receipt Date: 20120514
  Transmission Date: 20120825
  Serious: Yes (Hospitalization)
  Sender: FDA-Public Use
  Company Number: CA-CELGENEUS-028-21880-12043125

PATIENT
  Sex: Female

DRUGS (11)
  1. REVLIMID [Suspect]
     Dosage: 15 MILLIGRAM
     Route: 048
     Dates: start: 20120501
  2. PREDNISONE [Concomitant]
     Route: 065
  3. LYRICA [Concomitant]
     Route: 065
  4. NORTRIPTYLINE HCL [Concomitant]
     Route: 065
  5. CIPROFLOXACIN [Concomitant]
     Dosage: 500 MILLIGRAM
     Route: 048
     Dates: start: 20120328
  6. OXYCONTIN [Concomitant]
     Route: 065
  7. REVLIMID [Suspect]
     Indication: MULTIPLE MYELOMA
     Dosage: 25 MILLIGRAM
     Route: 048
     Dates: start: 20120314, end: 20120427
  8. OXYGEN [Concomitant]
     Dosage: 2 LITERS
     Route: 065
     Dates: start: 20120331
  9. METFORMIN HCL [Concomitant]
     Route: 065
  10. DEXAMETHASONE [Concomitant]
     Indication: MULTIPLE MYELOMA
     Route: 065
  11. PIPERACILLIN AND TAZOBACTAM [Concomitant]
     Indication: FEBRILE NEUTROPENIA
     Route: 065
     Dates: start: 20120331

REACTIONS (2)
  - HEADACHE [None]
  - PERICARDITIS [None]
